FAERS Safety Report 5514071-2 (Version None)
Quarter: 2007Q4

REPORT INFORMATION
  Report Type: 
  Country: None (occurrence: None)
  Receive Date: 20071113
  Receipt Date: 20071030
  Transmission Date: 20080405
  Serious: Yes (Hospitalization)
  Sender: FDA-Public Use
  Company Number: IT-AMGEN-UK244942

PATIENT
  Sex: Female

DRUGS (13)
  1. PANITUMUMAB [Suspect]
     Route: 042
     Dates: start: 20070711
  2. LEUCOVORIN CALCIUM [Concomitant]
  3. FLUOROURACIL [Concomitant]
  4. OXALIPLATIN [Concomitant]
  5. DEXAMETHASONE [Concomitant]
     Route: 042
     Dates: start: 20070711
  6. ONDANSETRON [Concomitant]
     Route: 042
     Dates: start: 20070711
  7. ZANTAC [Concomitant]
     Route: 042
     Dates: start: 20070711
  8. GRANISETRON [Concomitant]
     Route: 030
     Dates: start: 20070712
  9. MACROGOL [Concomitant]
     Route: 047
     Dates: start: 20070823
  10. MOST CREMA 2S [Concomitant]
     Route: 061
     Dates: start: 20070711
  11. XANAX [Concomitant]
     Route: 048
     Dates: start: 20070920
  12. CITALOPRAM HYDROBROMIDE [Concomitant]
     Route: 048
     Dates: start: 20070920
  13. LENOGRASTIM [Concomitant]
     Route: 058
     Dates: start: 20070920, end: 20070921

REACTIONS (3)
  - ANOREXIA [None]
  - DIARRHOEA [None]
  - FOLLICULITIS [None]
